FAERS Safety Report 4274319-1 (Version None)
Quarter: 2004Q1

REPORT INFORMATION
  Report Type: 
  Country: None (occurrence: None)
  Receive Date: 20040115
  Receipt Date: 20040105
  Transmission Date: 20041129
  Serious: Yes (Other)
  Sender: FDA-Public Use
  Company Number: BE-JNJFOC-20031202903

PATIENT
  Age: 41 Year
  Sex: Female

DRUGS (4)
  1. CISAPRIDE (CISAPRIDE) TABLETS [Suspect]
     Indication: DIABETIC GASTROPARESIS
     Dosage: 10 MG, 4 IN 1 DAY: 10 MG, 2 IN 2 DAY: 10 MG, 4 IN 1 DAY
     Dates: start: 20030130
  2. CISAPRIDE (CISAPRIDE) TABLETS [Suspect]
     Indication: DIABETIC GASTROPARESIS
     Dosage: 10 MG, 4 IN 1 DAY: 10 MG, 2 IN 2 DAY: 10 MG, 4 IN 1 DAY
     Dates: start: 20031220
  3. TRAZODONE HCL [Concomitant]
  4. CERAZETTE (DESOGESTREL) [Concomitant]

REACTIONS (2)
  - STRESS SYMPTOMS [None]
  - VENTRICULAR EXTRASYSTOLES [None]
